FAERS Safety Report 8607289-3 (Version None)
Quarter: 2012Q3

REPORT INFORMATION
  Report Type: 
  Country: None (occurrence: None)
  Receive Date: 20120807
  Receipt Date: 20120724
  Transmission Date: 20120928
  Serious: Yes (Other)
  Sender: FDA-Public Use
  Company Number: DKLU1083631

PATIENT
  Sex: Male

DRUGS (11)
  1. LAMOTRIGINE [Suspect]
     Indication: INFANTILE SPASMS
  2. CORTICOTROPIN (CORTICOTROPIN) [Concomitant]
  3. VALPROIC ACID [Suspect]
     Indication: INFANTILE SPASMS
  4. PHENYTOIN [Suspect]
     Indication: INFANTILE SPASMS
  5. GABAPENTIN [Suspect]
     Indication: INFANTILE SPASMS
  6. TOPIRAMATE [Suspect]
     Indication: INFANTILE SPASMS
  7. NITRAZEPAM [Concomitant]
  8. ZONISAMIDE [Concomitant]
  9. ACETAZOLAMIDE [Concomitant]
  10. ONFI [Suspect]
     Indication: INFANTILE SPASMS
  11. PYRIDOXINE HYDROCHLORIDE [Concomitant]

REACTIONS (3)
  - DROP ATTACKS [None]
  - DRUG INEFFECTIVE [None]
  - CONVULSION [None]
